FAERS Safety Report 5838772-1 (Version None)
Quarter: 2008Q3

REPORT INFORMATION
  Report Type: 
  Country: None (occurrence: None)
  Receive Date: 20080808
  Receipt Date: 20080729
  Transmission Date: 20090109
  Serious: Yes (Hospitalization, Disabling, Other)
  Sender: FDA-Public Use
  Company Number: DE-ABBOTT-08P-062-0439134-00

PATIENT
  Sex: Female
  Weight: 91 kg

DRUGS (4)
  1. HUMIRA [Suspect]
     Indication: RHEUMATOID ARTHRITIS
     Route: 058
     Dates: start: 20050901
  2. PREDNISOLONE [Suspect]
     Indication: TINNITUS
     Route: 048
  3. METHOTREXATE [Suspect]
     Indication: DRUG USE FOR UNKNOWN INDICATION
  4. LEKOVIT CA [Concomitant]
     Indication: DRUG USE FOR UNKNOWN INDICATION

REACTIONS (5)
  - BLINDNESS [None]
  - RETINAL HAEMORRHAGE [None]
  - SUDDEN HEARING LOSS [None]
  - TINNITUS [None]
  - VISUAL ACUITY REDUCED [None]
